FAERS Safety Report 25847829 (Version 2)
Quarter: 2025Q4

REPORT INFORMATION
  Report Type: Spontaneous
  Country: US (occurrence: None)
  Receive Date: 20250925
  Receipt Date: 20251118
  Transmission Date: 20260118
  Serious: Yes (Hospitalization)
  Sender: CHIESI
  Company Number: US-CHIESI-2025CHF06676

PATIENT
  Sex: Female
  Weight: 47.446 kg

DRUGS (8)
  1. MYALEPT [Suspect]
     Active Substance: METRELEPTIN
     Indication: Familial partial lipodystrophy
     Dosage: 1 MILLILITER, BID
     Dates: start: 20200320
  2. MYALEPT [Suspect]
     Active Substance: METRELEPTIN
     Dosage: UNK
  3. VITAMIN B12 [Concomitant]
     Active Substance: CYANOCOBALAMIN
     Indication: Product used for unknown indication
     Dosage: UNK
  4. VITAMIN D3 [Concomitant]
     Active Substance: CHOLECALCIFEROL
     Indication: Product used for unknown indication
     Dosage: UNK
  5. NEURONTIN [Concomitant]
     Active Substance: GABAPENTIN
     Indication: Product used for unknown indication
     Dosage: 400 MILLIGRAM, QD
     Dates: start: 20240905
  6. NEURONTIN [Concomitant]
     Active Substance: GABAPENTIN
     Dosage: 600 MILLIGRAM, QD
  7. VITAMINS [Concomitant]
     Active Substance: VITAMINS
     Indication: Product used for unknown indication
     Dosage: UNK
  8. BACTERIOSTATIC WATER [Concomitant]
     Active Substance: WATER
     Indication: Product used for unknown indication
     Dosage: UNK

REACTIONS (11)
  - Type 1 diabetes mellitus [Recovered/Resolved with Sequelae]
  - Cellulitis [Recovered/Resolved with Sequelae]
  - Osteomyelitis [Recovered/Resolved with Sequelae]
  - Hypotension [Recovered/Resolved with Sequelae]
  - Hypovolaemia [Recovered/Resolved with Sequelae]
  - Diabetic foot [Recovered/Resolved with Sequelae]
  - Anaemia of chronic disease [Recovered/Resolved with Sequelae]
  - Dyslipidaemia [Recovered/Resolved with Sequelae]
  - Chronic obstructive pulmonary disease [Recovered/Resolved with Sequelae]
  - Pain [Recovered/Resolved with Sequelae]
  - Product dose omission issue [Recovered/Resolved with Sequelae]
